FAERS Safety Report 23737794 (Version 1)
Quarter: 2024Q2

REPORT INFORMATION
  Report Type: Spontaneous
  Country: IT (occurrence: IT)
  Receive Date: 20240412
  Receipt Date: 20240412
  Transmission Date: 20240716
  Serious: Yes (Other)
  Sender: FDA-Public Use
  Company Number: IT-AMGEN-ITASP2024070281

PATIENT
  Age: 64 Year
  Sex: Male

DRUGS (3)
  1. VECTIBIX [Suspect]
     Active Substance: PANITUMUMAB
     Indication: Product used for unknown indication
     Dosage: 468 MILLIGRAM, 6 CYCLE
     Route: 040
     Dates: start: 20240325, end: 20240325
  2. OXALIPLATIN [Suspect]
     Active Substance: OXALIPLATIN
     Indication: Product used for unknown indication
     Dosage: 124 MILLIGRAM, 6 CYCLE
     Route: 042
     Dates: start: 20240325, end: 20240325
  3. FLUOROURACIL [Suspect]
     Active Substance: FLUOROURACIL
     Indication: Product used for unknown indication
     Dosage: 4680 MILLIGRAM, 6 CYCLE
     Route: 040
     Dates: start: 20240325, end: 20240325

REACTIONS (2)
  - Neurotoxicity [Recovering/Resolving]
  - Skin toxicity [Recovering/Resolving]

NARRATIVE: CASE EVENT DATE: 20240325
